FAERS Safety Report 15240055 (Version 1)
Quarter: 2018Q3

REPORT INFORMATION
  Report Type: Spontaneous
  Country: US (occurrence: US)
  Receive Date: 20180710
  Receipt Date: 20180710
  Transmission Date: 20181010
  Serious: Yes (Other)
  Sender: FDA-Public Use
  Company Number: None

PATIENT
  Age: 33 Year
  Sex: Male
  Weight: 66.6 kg

DRUGS (4)
  1. ABILIFY [Concomitant]
     Active Substance: ARIPIPRAZOLE
  2. BUPRENORPHINE. [Concomitant]
     Active Substance: BUPRENORPHINE
  3. DEXTROAMPHET SACCHARAT, AMPHET ASPARTATE, DEXTROAMPHET SULFATE AND AMPHET SULFAT [Suspect]
     Active Substance: AMPHETAMINE ASPARTATE\AMPHETAMINE SULFATE\DEXTROAMPHETAMINE SACCHARATE\DEXTROAMPHETAMINE SULFATE
     Indication: ATTENTION DEFICIT/HYPERACTIVITY DISORDER
     Dosage: ?          QUANTITY:1 TABLET(S);?
     Route: 048
  4. DIAZEPAM. [Concomitant]
     Active Substance: DIAZEPAM

REACTIONS (6)
  - Muscle twitching [None]
  - Rash [None]
  - Headache [None]
  - Product substitution issue [None]
  - Irritability [None]
  - Fatigue [None]

NARRATIVE: CASE EVENT DATE: 20180703
